FAERS Safety Report 17657530 (Version 2)
Quarter: 2020Q2

REPORT INFORMATION
  Report Type: Spontaneous
  Country: GB (occurrence: GB)
  Receive Date: 20200410
  Receipt Date: 20200416
  Transmission Date: 20200713
  Serious: Yes (Other)
  Sender: FDA-Public Use
  Company Number: GB-ASCEND THERAPEUTICS US, LLC-2082674

PATIENT
  Sex: Female

DRUGS (2)
  1. ESTROGEL [Suspect]
     Active Substance: ESTRADIOL
     Indication: HORMONE REPLACEMENT THERAPY
  2. UTROGESTAN [Suspect]
     Active Substance: PROGESTERONE
     Route: 048

REACTIONS (3)
  - Product use issue [None]
  - Uterine leiomyoma [Unknown]
  - Postmenopausal haemorrhage [Unknown]
